FAERS Safety Report 19272117 (Version 4)
Quarter: 2021Q3

REPORT INFORMATION
  Report Type: Report from Study
  Country: CA (occurrence: CA)
  Receive Date: 20210518
  Receipt Date: 20210721
  Transmission Date: 20211014
  Serious: Yes (Disabling)
  Sender: FDA-Public Use
  Company Number: CA-BRISTOL-MYERS SQUIBB COMPANY-BMS-2021-038433

PATIENT
  Age: 76 Year
  Sex: Male

DRUGS (4)
  1. HYDROMORPHONE [Concomitant]
     Active Substance: HYDROMORPHONE
     Indication: PRODUCT USED FOR UNKNOWN INDICATION
     Dosage: UNK
     Route: 065
  2. NIVOLUMAB [Suspect]
     Active Substance: NIVOLUMAB
     Indication: PLEURAL MESOTHELIOMA
     Dosage: 360 MILLIGRAM, Q3WK
     Route: 042
     Dates: start: 20210419, end: 20210610
  3. YERVOY [Suspect]
     Active Substance: IPILIMUMAB
     Indication: PLEURAL MESOTHELIOMA
     Dosage: 68 MILLIGRAM, Q6WK
     Route: 042
     Dates: start: 20210419
  4. FLOMAX [Concomitant]
     Active Substance: TAMSULOSIN HYDROCHLORIDE
     Indication: PRODUCT USED FOR UNKNOWN INDICATION
     Dosage: UNK
     Route: 065

REACTIONS (9)
  - Oxygen saturation decreased [Recovering/Resolving]
  - Tremor [Recovering/Resolving]
  - Blood pressure increased [Unknown]
  - Sleep disorder [Unknown]
  - Chest pain [Unknown]
  - Headache [Unknown]
  - Myalgia [Recovering/Resolving]
  - Vomiting [Recovering/Resolving]
  - Hyperventilation [Recovering/Resolving]

NARRATIVE: CASE EVENT DATE: 20210424
